FAERS Safety Report 7462299-7 (Version None)
Quarter: 2011Q2

REPORT INFORMATION
  Report Type: 
  Country: None (occurrence: None)
  Receive Date: 20110506
  Receipt Date: 20110426
  Transmission Date: 20111010
  Serious: Yes (Other)
  Sender: FDA-Public Use
  Company Number: US-BAYER-2011-017070

PATIENT
  Sex: Female

DRUGS (1)
  1. YAZ [Suspect]
     Indication: PRODUCT USED FOR UNKNOWN INDICATION
     Dosage: UNK
     Route: 048
     Dates: start: 20091101

REACTIONS (9)
  - THROMBOSIS [None]
  - GENERAL PHYSICAL HEALTH DETERIORATION [None]
  - GALLBLADDER INJURY [None]
  - PAIN [None]
  - INJURY [None]
  - DEEP VEIN THROMBOSIS [None]
  - DEPRESSION [None]
  - ANXIETY [None]
  - EMOTIONAL DISTRESS [None]
